FAERS Safety Report 23427105 (Version 1)
Quarter: 2024Q1

REPORT INFORMATION
  Report Type: Spontaneous
  Country: ES (occurrence: ES)
  Receive Date: 20240122
  Receipt Date: 20240122
  Transmission Date: 20240410
  Serious: Yes (Other)
  Sender: FDA-Public Use
  Company Number: None

PATIENT
  Age: 76 Year
  Sex: Male

DRUGS (8)
  1. CLOXACILLIN [Suspect]
     Active Substance: CLOXACILLIN
     Route: 042
     Dates: start: 20210407, end: 20210425
  2. DAPTOMYCIN [Suspect]
     Active Substance: DAPTOMYCIN
     Dates: start: 20210414, end: 20210424
  3. METRONIDAZOLE [Suspect]
     Active Substance: METRONIDAZOLE
     Route: 042
     Dates: start: 20210414, end: 20210423
  4. LEVOFLOXACIN [Concomitant]
     Active Substance: LEVOFLOXACIN
     Dates: start: 20210426, end: 20210503
  5. UNSPECIFIED INGREDIENT [Suspect]
     Active Substance: UNSPECIFIED INGREDIENT
     Route: 042
     Dates: start: 20210414, end: 20210503
  6. CEFAZOLIN [Concomitant]
     Active Substance: CEFAZOLIN
     Route: 042
     Dates: start: 20210426, end: 20210503
  7. FLUCONAZOLE [Suspect]
     Active Substance: FLUCONAZOLE
     Dates: start: 20210414, end: 20210503
  8. CEFEPIME HYDROCHLORIDE [Suspect]
     Active Substance: CEFEPIME HYDROCHLORIDE
     Route: 042
     Dates: start: 20210423, end: 20210426

REACTIONS (2)
  - Adverse reaction [Not Recovered/Not Resolved]
  - Thrombocytopenia [Not Recovered/Not Resolved]

NARRATIVE: CASE EVENT DATE: 20210419
